FAERS Safety Report 18283616 (Version 2)
Quarter: 2021Q2

REPORT INFORMATION
  Report Type: Spontaneous
  Country: CA (occurrence: CA)
  Receive Date: 20200918
  Receipt Date: 20210408
  Transmission Date: 20210717
  Serious: Yes (Hospitalization, Other)
  Sender: FDA-Public Use
  Company Number: CA-ALVOGEN-2020-ALVOGEN-114353

PATIENT
  Age: 70 Year
  Sex: Female

DRUGS (17)
  1. SANDOSTATIN LAR DEPOT [Suspect]
     Active Substance: OCTREOTIDE ACETATE
     Indication: CARCINOID TUMOUR
     Route: 030
     Dates: start: 2019
  2. ATENOLOL. [Concomitant]
     Active Substance: ATENOLOL
     Indication: PRODUCT USED FOR UNKNOWN INDICATION
     Route: 048
     Dates: start: 20160917
  3. CLONIDINE HYDROCHLORIDE. [Concomitant]
     Active Substance: CLONIDINE HYDROCHLORIDE
     Indication: PRODUCT USED FOR UNKNOWN INDICATION
     Route: 048
     Dates: start: 20160716
  4. FISH OIL [Concomitant]
     Active Substance: FISH OIL
     Indication: PRODUCT USED FOR UNKNOWN INDICATION
     Route: 048
     Dates: start: 20140424
  5. PANCRELIPASE. [Concomitant]
     Active Substance: PANCRELIPASE
     Indication: PRODUCT USED FOR UNKNOWN INDICATION
     Route: 065
  6. AMCINONIDE. [Concomitant]
     Active Substance: AMCINONIDE
     Indication: SUNBURN
     Dosage: 0.1% UNKNOWN
     Route: 065
     Dates: start: 2013
  7. CLARITHROMYCIN. [Concomitant]
     Active Substance: CLARITHROMYCIN
     Indication: PRODUCT USED FOR UNKNOWN INDICATION
     Route: 065
     Dates: start: 20180112
  8. CYANOCOBALAMIN. [Concomitant]
     Active Substance: CYANOCOBALAMIN
     Indication: PRODUCT USED FOR UNKNOWN INDICATION
     Route: 048
     Dates: start: 20140424
  9. SYMBICORT [Concomitant]
     Active Substance: BUDESONIDE\FORMOTEROL FUMARATE DIHYDRATE
     Indication: PRODUCT USED FOR UNKNOWN INDICATION
     Dosage: 2 PUFF BID
     Route: 065
     Dates: start: 20180112
  10. GLUCOSAMINE [Concomitant]
     Active Substance: GLUCOSAMINE
     Indication: PRODUCT USED FOR UNKNOWN INDICATION
     Dosage: 500.0MG UNKNOWN
     Route: 048
     Dates: start: 20140424
  11. AMCINONIDE. [Concomitant]
     Active Substance: AMCINONIDE
     Indication: PRODUCT USED FOR UNKNOWN INDICATION
     Route: 065
  12. LISINOPRIL. [Suspect]
     Active Substance: LISINOPRIL
     Indication: BLOOD PRESSURE MEASUREMENT
     Route: 048
     Dates: start: 20160917
  13. COTAZYM ECS [Concomitant]
     Indication: PRODUCT USED FOR UNKNOWN INDICATION
     Route: 065
     Dates: start: 20151021
  14. HYDROMORPHONE [Concomitant]
     Active Substance: HYDROMORPHONE
     Indication: PRODUCT USED FOR UNKNOWN INDICATION
     Route: 065
  15. AMLODIPINE BESILATE [Concomitant]
     Active Substance: AMLODIPINE BESYLATE
     Indication: PRODUCT USED FOR UNKNOWN INDICATION
     Route: 048
     Dates: start: 20160917
  16. HYDRALAZINE [Concomitant]
     Active Substance: HYDRALAZINE HYDROCHLORIDE
     Indication: PRODUCT USED FOR UNKNOWN INDICATION
     Route: 048
     Dates: start: 20160917
  17. ASCORBIC ACID/COLECALCIFEROL/NICOTINAMIDE/PANTHENOL/PYRIDOXINE HYDROCHLORIDE/RETINOL PALMITATE/RIBOF [Concomitant]
     Indication: PRODUCT USED FOR UNKNOWN INDICATION
     Route: 048
     Dates: start: 20140424

REACTIONS (33)
  - Cyst [Unknown]
  - Insomnia [Unknown]
  - Muscle spasms [Unknown]
  - Synovial cyst [Unknown]
  - Hyperhidrosis [Unknown]
  - Dizziness [Unknown]
  - Cough [Unknown]
  - Haemangioma [Unknown]
  - Limb discomfort [Recovering/Resolving]
  - Lymphoma [Unknown]
  - Malaise [Not Recovered/Not Resolved]
  - Illness [Unknown]
  - Breast pain [Not Recovered/Not Resolved]
  - Vitreous floaters [Unknown]
  - Needle issue [Unknown]
  - Infection [Unknown]
  - Blood iron decreased [Unknown]
  - Dyskinesia [Recovering/Resolving]
  - Blood pressure systolic increased [Unknown]
  - Nipple exudate bloody [Unknown]
  - Pain in extremity [Recovering/Resolving]
  - Lipoma [Unknown]
  - Drug hypersensitivity [Unknown]
  - Arthralgia [Recovering/Resolving]
  - Eye infection [Unknown]
  - Fatigue [Recovering/Resolving]
  - Blood pressure decreased [Unknown]
  - Asthenia [Unknown]
  - Feeling hot [Unknown]
  - Heart rate decreased [Unknown]
  - Productive cough [Unknown]
  - Hypoaesthesia [Unknown]
  - Allergy to metals [Unknown]

NARRATIVE: CASE EVENT DATE: 2016
